FAERS Safety Report 5503789-3 (Version None)
Quarter: 2007Q4

REPORT INFORMATION
  Report Type: 
  Country: None (occurrence: None)
  Receive Date: 20071030
  Receipt Date: 20070705
  Transmission Date: 20080405
  Serious: No
  Sender: FDA-Public Use
  Company Number: 265407

PATIENT
  Age: 45 Year
  Sex: Female

DRUGS (2)
  1. LEVEMIR [Suspect]
     Indication: INSULIN-REQUIRING TYPE II DIABETES MELLITUS
     Dosage: 10 IU, QD, SUBCUTANEOUS
     Route: 058
     Dates: end: 20070702
  2. ACTOS /01460201/ (PIOGLITAZONE) [Concomitant]

REACTIONS (2)
  - BACK PAIN [None]
  - HEADACHE [None]
